FAERS Safety Report 18083099 (Version 1)
Quarter: 2020Q3

REPORT INFORMATION
  Report Type: Spontaneous
  Country: US (occurrence: US)
  Receive Date: 20200728
  Receipt Date: 20200728
  Transmission Date: 20201103
  Serious: No
  Sender: FDA-Public Use
  Company Number: US-PERRIGO-19US015290

PATIENT
  Sex: Male
  Weight: 70.3 kg

DRUGS (4)
  1. MINOXIDIL. [Suspect]
     Active Substance: MINOXIDIL
     Dosage: .25 ML, QD
     Route: 061
     Dates: start: 2019, end: 201911
  2. FINASTERIDE. [Suspect]
     Active Substance: FINASTERIDE
     Dosage: 1/2 TABLET, QD
     Route: 048
     Dates: start: 2019
  3. MINOXIDIL. [Suspect]
     Active Substance: MINOXIDIL
     Indication: ALOPECIA
     Dosage: 1 ML, BID
     Route: 061
     Dates: start: 201906, end: 2019
  4. FINASTERIDE. [Suspect]
     Active Substance: FINASTERIDE
     Indication: ALOPECIA
     Dosage: 1 TABLET, QD
     Route: 048
     Dates: start: 201906, end: 2019

REACTIONS (9)
  - Periorbital swelling [Recovered/Resolved]
  - Blood pressure decreased [Recovered/Resolved]
  - Fatigue [Recovered/Resolved]
  - Hypertrichosis [Recovered/Resolved]
  - Underdose [Recovered/Resolved]
  - Lethargy [Recovered/Resolved]
  - Inappropriate schedule of product administration [Recovered/Resolved]
  - Chest discomfort [Recovered/Resolved]
  - Palpitations [Recovered/Resolved]

NARRATIVE: CASE EVENT DATE: 2019
